FAERS Safety Report 13449365 (Version 6)
Quarter: 2018Q1

REPORT INFORMATION
  Report Type: Spontaneous
  Country: US (occurrence: US)
  Receive Date: 20170417
  Receipt Date: 20180330
  Transmission Date: 20180508
  Serious: Yes (Hospitalization)
  Sender: FDA-Public Use
  Company Number: US-PFIZER INC-2017161204

PATIENT
  Age: 56 Year
  Sex: Female

DRUGS (12)
  1. TIZANIDINE. [Concomitant]
     Active Substance: TIZANIDINE
     Dosage: 2400 MG, 1X/DAY(AT BED TIME)
     Dates: start: 2016
  2. CLONAZEPAM. [Concomitant]
     Active Substance: CLONAZEPAM
     Indication: GENERALISED TONIC-CLONIC SEIZURE
     Dosage: 2 MG, 3X/DAY (TAPERING TO 4MG DAILY)
     Dates: start: 2010
  3. METAXALONE. [Suspect]
     Active Substance: METAXALONE
     Indication: STENOSIS
     Dosage: 800 MG, 2X/DAY (800MG TABLET, AM AND 8 HRS LATER)
     Route: 048
     Dates: start: 201610
  4. SOMA [Suspect]
     Active Substance: CARISOPRODOL
     Indication: MUSCLE SPASMS
     Dosage: 350 MG, UNK
  5. SOMA [Suspect]
     Active Substance: CARISOPRODOL
     Dosage: 4 DF, DAILY
  6. SOMA [Suspect]
     Active Substance: CARISOPRODOL
     Dosage: UNK, 4X/DAY (4 X/DAY 2A3)
  7. CLONAZEPAM. [Concomitant]
     Active Substance: CLONAZEPAM
     Dosage: 4 MG, DAILY
  8. METAXALONE. [Suspect]
     Active Substance: METAXALONE
     Indication: MUSCLE SPASMS
     Dosage: UNK, 2X/DAY (METAXALONE 2/BID) 2X/DAY
     Dates: start: 2012, end: 2014
  9. SOMA [Suspect]
     Active Substance: CARISOPRODOL
     Dosage: 3 DF, DAILY
  10. CLONAZEPAM. [Concomitant]
     Active Substance: CLONAZEPAM
     Dosage: UNK
     Dates: start: 2001
  11. LAMICTAL [Concomitant]
     Active Substance: LAMOTRIGINE
     Indication: SEIZURE
     Dosage: UNK, DAILY (ON INCREASED DOSE)
     Dates: start: 2014
  12. LAMICTAL [Concomitant]
     Active Substance: LAMOTRIGINE
     Dosage: UNK
     Dates: start: 2010

REACTIONS (3)
  - Somnolence [Recovered/Resolved]
  - Stenosis [Not Recovered/Not Resolved]
  - Drug ineffective [Unknown]

NARRATIVE: CASE EVENT DATE: 2012
